FAERS Safety Report 9261472 (Version 2)
Quarter: 2013Q3

REPORT INFORMATION
  Report Type: Report from Study
  Country: FR (occurrence: FR)
  Receive Date: 20130429
  Receipt Date: 20130711
  Transmission Date: 20140515
  Serious: Yes (Other)
  Sender: FDA-Public Use
  Company Number: FR-AMGEN-FRACT2013029157

PATIENT
  Age: 56 Year
  Sex: Male

DRUGS (8)
  1. ETANERCEPT [Suspect]
     Indication: RHEUMATOID ARTHRITIS
     Dosage: 25 MG, 2 TIMES/WK
     Route: 065
     Dates: start: 200507, end: 2006
  2. ETANERCEPT [Suspect]
     Dosage: 50 MG, QWK
     Route: 065
     Dates: start: 2006, end: 200802
  3. ETANERCEPT [Suspect]
     Dosage: 50 MG, QWK
     Route: 065
     Dates: start: 200802, end: 201005
  4. LEFLUNOMIDE [Concomitant]
     Dosage: 20 MG, DAILY
     Dates: start: 200611, end: 201005
  5. PREDNISONE [Concomitant]
     Dosage: 20MG DAILY
     Dates: start: 200504, end: 200804
  6. PREDNISONE [Concomitant]
     Dosage: 10 MG, QD
     Dates: start: 200804, end: 200810
  7. PREDNISONE [Concomitant]
     Dosage: 7MG DAILY
     Dates: start: 200810, end: 2009
  8. PREDNISONE [Concomitant]
     Dosage: 2MG DAILY
     Dates: start: 201001, end: 201005

REACTIONS (1)
  - Prostate cancer [Recovered/Resolved]
